FAERS Safety Report 11393521 (Version 3)
Quarter: 2015Q3

REPORT INFORMATION
  Report Type: Spontaneous
  Country: GB (occurrence: GB)
  Receive Date: 20150818
  Receipt Date: 20150929
  Transmission Date: 20151125
  Serious: Yes (Hospitalization, Other)
  Sender: FDA-Public Use
  Company Number: GB-AMGEN-GBRSP2015083975

PATIENT
  Age: 64 Year
  Sex: Female

DRUGS (1)
  1. ENBREL [Suspect]
     Active Substance: ETANERCEPT
     Indication: RHEUMATOID ARTHRITIS
     Dosage: 50 MG, WEEKLY
     Route: 065
     Dates: start: 20150708

REACTIONS (5)
  - Fall [Unknown]
  - Pneumonia [Unknown]
  - Respiratory tract infection [Unknown]
  - Accident at home [Unknown]
  - Spinal fracture [Unknown]

NARRATIVE: CASE EVENT DATE: 2015
